FAERS Safety Report 12388426 (Version 1)
Quarter: 2016Q2

REPORT INFORMATION
  Report Type: Spontaneous
  Country: US (occurrence: US)
  Receive Date: 20160520
  Receipt Date: 20160520
  Transmission Date: 20160815
  Serious: Yes (Hospitalization)
  Sender: FDA-Public Use
  Company Number: US-ASTRAZENECA-2016SE52354

PATIENT
  Age: 18352 Day
  Sex: Female

DRUGS (1)
  1. BRILINTA [Suspect]
     Active Substance: TICAGRELOR
     Indication: ACUTE CORONARY SYNDROME
     Route: 048
     Dates: start: 20150526

REACTIONS (3)
  - Drug hypersensitivity [Unknown]
  - Pruritus generalised [Unknown]
  - Generalised erythema [Unknown]

NARRATIVE: CASE EVENT DATE: 20150429
